FAERS Safety Report 19859886 (Version 1)
Quarter: 2021Q3

REPORT INFORMATION
  Report Type: Spontaneous
  Country: US (occurrence: US)
  Receive Date: 20210921
  Receipt Date: 20210921
  Transmission Date: 20211014
  Serious: No
  Sender: FDA-Public Use
  Company Number: US-CELLTRION INC.-2021US000491

PATIENT

DRUGS (1)
  1. INFLECTRA [Suspect]
     Active Substance: INFLIXIMAB-DYYB
     Indication: CROHN^S DISEASE
     Dosage: 5MG PER KG (5 MG/KG) EVERY 4 WEEKS
     Route: 065
     Dates: start: 202010

REACTIONS (2)
  - Weight increased [Unknown]
  - Off label use [Unknown]
